FAERS Safety Report 17000371 (Version 1)
Quarter: 2019Q4

REPORT INFORMATION
  Report Type: Spontaneous
  Country: US (occurrence: US)
  Receive Date: 20191106
  Receipt Date: 20191106
  Transmission Date: 20200122
  Serious: Yes (Death)
  Sender: FDA-Public Use
  Company Number: US-CELGENEUS-USA-20191100693

PATIENT
  Sex: Female

DRUGS (2)
  1. ABRAXANE [Suspect]
     Active Substance: PACLITAXEL
     Indication: LUNG NEOPLASM MALIGNANT
     Dosage: 138 MILLIGRAM
     Route: 042
     Dates: start: 2019
  2. ABRAXANE [Suspect]
     Active Substance: PACLITAXEL
     Indication: BONE CANCER
     Dosage: 100 MILLIGRAM
     Route: 042
     Dates: start: 20190806

REACTIONS (1)
  - Death [Fatal]

NARRATIVE: CASE EVENT DATE: 2019
